FAERS Safety Report 17146913 (Version 2)
Quarter: 2020Q1

REPORT INFORMATION
  Report Type: Spontaneous
  Country: US (occurrence: US)
  Receive Date: 20191212
  Receipt Date: 20200312
  Transmission Date: 20200409
  Serious: No
  Sender: FDA-Public Use
  Company Number: US-009507513-1912USA005456

PATIENT
  Sex: Female

DRUGS (2)
  1. ENTEREG [Suspect]
     Active Substance: ALVIMOPAN
     Indication: HYSTERECTOMY
     Dosage: UNK
  2. ENTEREG [Suspect]
     Active Substance: ALVIMOPAN
     Indication: HYSTERECTOMY

REACTIONS (2)
  - Product use in unapproved indication [Unknown]
  - No adverse event [Unknown]
